FAERS Safety Report 6015543-7 (Version None)
Quarter: 2008Q4

REPORT INFORMATION
  Report Type: 
  Country: None (occurrence: None)
  Receive Date: 20081218
  Receipt Date: 20081202
  Transmission Date: 20090506
  Serious: Yes (Other)
  Sender: FDA-Public Use
  Company Number: 2008S1000531

PATIENT
  Age: 83 Year
  Sex: Male

DRUGS (2)
  1. ACITRETIN [Suspect]
     Indication: SKIN CANCER
     Dosage: 10 MG; QD; PO
     Route: 048
     Dates: start: 20060509, end: 20060616
  2. ACITRETIN [Suspect]
     Indication: SKIN CANCER
     Dosage: 10 MG; QD; PO
     Route: 048
     Dates: start: 20060706, end: 20081121

REACTIONS (3)
  - BLOOD CREATININE INCREASED [None]
  - BLOOD UREA INCREASED [None]
  - HEADACHE [None]
